FAERS Safety Report 8828618 (Version 1)
Quarter: 2012Q4

REPORT INFORMATION
  Report Type: 
  Country: GR (occurrence: GR)
  Receive Date: 20121005
  Receipt Date: 20121005
  Transmission Date: 20130627
  Serious: Yes (Other)
  Sender: FDA-Public Use
  Company Number: GR-SANOFI-AVENTIS-2012SA072573

PATIENT
  Age: 24 Year
  Sex: Female

DRUGS (1)
  1. RIFADIN [Suspect]
     Indication: FOLLICULITIS
     Dosage: in the morning
     Route: 065
     Dates: start: 20120920

REACTIONS (1)
  - Diarrhoea haemorrhagic [Not Recovered/Not Resolved]
